FAERS Safety Report 4987759-X (Version None)
Quarter: 2006Q2

REPORT INFORMATION
  Report Type: 
  Country: None (occurrence: None)
  Receive Date: 20060426
  Receipt Date: 20060418
  Transmission Date: 20061013
  Serious: Yes (Death, Other)
  Sender: FDA-Public Use
  Company Number: 2006US000624

PATIENT
  Age: 60 Year
  Sex: Female

DRUGS (7)
  1. ADENOSCAN [Suspect]
     Indication: SCAN MYOCARDIAL PERFUSION
     Dosage: IV NOS
     Route: 042
     Dates: start: 20050617, end: 20050617
  2. TRAMADOL HCL [Concomitant]
  3. LANSOPRAZOLE [Concomitant]
  4. SENOKOT [Concomitant]
  5. FLUOXETINE [Concomitant]
  6. AMITRIPTYLINE HCL [Concomitant]
  7. VITAMIN B COMPLEX (NICOTINAMIDE, CALCIUM PANTOTHENATE, THIAMINE HYDROC [Concomitant]

REACTIONS (4)
  - ARRHYTHMIA [None]
  - ELECTROCARDIOGRAM P WAVE ABNORMAL [None]
  - INFUSION RELATED REACTION [None]
  - VENTRICULAR ASYSTOLE [None]
